FAERS Safety Report 11081275 (Version 1)
Quarter: 2015Q2

REPORT INFORMATION
  Report Type: Spontaneous
  Country: US (occurrence: US)
  Receive Date: 20150501
  Receipt Date: 20150501
  Transmission Date: 20150821
  Serious: No
  Sender: FDA-Public Use
  Company Number: US-ABBVIE-15P-163-1350274-00

PATIENT
  Sex: Female

DRUGS (1)
  1. CREON [Suspect]
     Active Substance: PANCRELIPASE AMYLASE\PANCRELIPASE LIPASE\PANCRELIPASE PROTEASE
     Indication: DYSPEPSIA
     Dosage: 1 CAPSULE WITH EACH MEA
     Route: 065

REACTIONS (2)
  - Rectal haemorrhage [Unknown]
  - Rectal tenesmus [Not Recovered/Not Resolved]

NARRATIVE: CASE EVENT DATE: 201502
